FAERS Safety Report 6511457-4 (Version None)
Quarter: 2009Q4

REPORT INFORMATION
  Report Type: 
  Country: None (occurrence: None)
  Receive Date: 20091222
  Receipt Date: 20091210
  Transmission Date: 20100525
  Serious: Yes (Death)
  Sender: FDA-Public Use
  Company Number: JP-SANOFI-AVENTIS-2009SA005375

PATIENT
  Age: 63 Year
  Sex: Female

DRUGS (7)
  1. ELPLAT [Suspect]
     Route: 041
     Dates: start: 20091021, end: 20091021
  2. XELODA [Suspect]
     Route: 048
     Dates: start: 20091021, end: 20091023
  3. AVASTIN [Suspect]
     Route: 041
     Dates: start: 20091021, end: 20091021
  4. AMARYL [Concomitant]
     Route: 065
  5. PIOGLITAZONE [Concomitant]
     Route: 065
  6. BASEN [Concomitant]
     Route: 065
  7. MEVALOTIN [Concomitant]
     Route: 065

REACTIONS (6)
  - BONE MARROW FAILURE [None]
  - NAUSEA [None]
  - NEUTROPHIL COUNT DECREASED [None]
  - PLATELET COUNT DECREASED [None]
  - SEPSIS [None]
  - STOMATITIS [None]
